FAERS Safety Report 4882768-3 (Version None)
Quarter: 2006Q1

REPORT INFORMATION
  Report Type: 
  Country: None (occurrence: None)
  Receive Date: 20060117
  Receipt Date: 20050406
  Transmission Date: 20060701
  Serious: Yes (Hospitalization, Other)
  Sender: FDA-Public Use
  Company Number: US-MERCK-0504USA01031

PATIENT
  Age: 52 Year
  Sex: Male
  Weight: 68 kg

DRUGS (13)
  1. VIOXX [Suspect]
     Indication: ARTHRITIS
     Route: 048
     Dates: start: 20000301, end: 20040101
  2. VASOTEC [Concomitant]
     Route: 065
  3. FERRIC SULFATE [Concomitant]
     Route: 065
  4. ACTOS [Concomitant]
     Route: 065
  5. COZAAR [Concomitant]
     Route: 065
  6. VICODIN ES [Concomitant]
     Route: 065
  7. VALIUM [Concomitant]
     Route: 065
  8. PREVACID [Concomitant]
     Route: 065
  9. SOMA [Concomitant]
     Route: 065
  10. VIAGRA [Concomitant]
     Route: 065
  11. FIORICET TABLETS [Concomitant]
     Route: 065
  12. HUMULIN [Concomitant]
     Route: 065
  13. ALTACE [Concomitant]
     Route: 065

REACTIONS (24)
  - ACCELERATED HYPERTENSION [None]
  - ANXIETY DISORDER [None]
  - AZOTAEMIA [None]
  - BRAIN STEM INFARCTION [None]
  - CHEST PAIN [None]
  - DERMATITIS [None]
  - DIABETIC HYPEROSMOLAR COMA [None]
  - DUODENITIS [None]
  - FOREIGN BODY TRAUMA [None]
  - GASTROOESOPHAGEAL REFLUX DISEASE [None]
  - HEADACHE [None]
  - HELICOBACTER GASTRITIS [None]
  - HEMIPARESIS [None]
  - HYPERCHOLESTEROLAEMIA [None]
  - HYPERGLYCAEMIC HYPEROSMOLAR NONKETOTIC SYNDROME [None]
  - HYPERTENSIVE CRISIS [None]
  - HYPOMAGNESAEMIA [None]
  - MALIGNANT HYPERTENSION [None]
  - NEUROPATHY PERIPHERAL [None]
  - OESOPHAGITIS [None]
  - RHABDOMYOLYSIS [None]
  - SCHIZOPHRENIA [None]
  - TRANSIENT ISCHAEMIC ATTACK [None]
  - VASCULAR DEMENTIA [None]
